FAERS Safety Report 4672490-0 (Version None)
Quarter: 2005Q2

REPORT INFORMATION
  Report Type: 
  Country: None (occurrence: None)
  Receive Date: 20050524
  Receipt Date: 20050512
  Transmission Date: 20051028
  Serious: Yes (Hospitalization)
  Sender: FDA-Public Use
  Company Number: 200511603FR

PATIENT
  Age: 89 Year
  Sex: Female

DRUGS (10)
  1. LASIX [Suspect]
     Route: 048
     Dates: start: 20050315, end: 20050325
  2. COVERSYL [Suspect]
     Route: 048
     Dates: end: 20050325
  3. SECTRAL [Concomitant]
  4. ZYLORIC [Concomitant]
     Route: 048
  5. LIPANOR [Concomitant]
     Route: 048
  6. KARDEGIC [Concomitant]
  7. PERIACTIN [Concomitant]
     Route: 048
  8. DAFALGAN [Concomitant]
  9. PRAXILENE [Concomitant]
     Route: 048
  10. TEMESTA [Concomitant]
     Route: 048

REACTIONS (3)
  - CONFUSIONAL STATE [None]
  - DEHYDRATION [None]
  - RENAL FAILURE ACUTE [None]
